FAERS Safety Report 7938718-6 (Version None)
Quarter: 2011Q4

REPORT INFORMATION
  Report Type: 
  Country: None (occurrence: None)
  Receive Date: 20111124
  Receipt Date: 20111121
  Transmission Date: 20120403
  Serious: Yes (Death, Hospitalization)
  Sender: FDA-Public Use
  Company Number: US-BIOGENIDEC-2011BI037980

PATIENT
  Age: 72 Year
  Sex: Female

DRUGS (7)
  1. WELLBUTRIN [Concomitant]
     Route: 048
  2. BACLOFEN [Concomitant]
     Route: 048
  3. TYSABRI [Suspect]
     Indication: MULTIPLE SCLEROSIS
     Route: 042
     Dates: start: 20100928, end: 20110127
  4. AMANTADINE HCL [Concomitant]
     Route: 048
  5. REMERON [Concomitant]
     Route: 048
  6. DETROL [Concomitant]
  7. VITAMIN D [Concomitant]

REACTIONS (3)
  - MULTIPLE SCLEROSIS [None]
  - DRUG INEFFECTIVE [None]
  - HALLUCINATION, VISUAL [None]
